FAERS Safety Report 12296163 (Version 6)
Quarter: 2017Q2

REPORT INFORMATION
  Report Type: Report from Study
  Country: BR (occurrence: BR)
  Receive Date: 20160422
  Receipt Date: 20170623
  Transmission Date: 20170830
  Serious: Yes (Hospitalization, Other)
  Sender: FDA-Public Use
  Company Number: BR-JNJFOC-20160409820

PATIENT
  Age: 59 Year
  Sex: Male

DRUGS (1)
  1. STELARA [Suspect]
     Active Substance: USTEKINUMAB
     Indication: PSORIASIS
     Route: 058
     Dates: start: 20151111

REACTIONS (8)
  - Oropharyngeal pain [Recovering/Resolving]
  - Drug dose omission [Unknown]
  - Dengue fever [Unknown]
  - Drug effect incomplete [Unknown]
  - Psoriasis [Recovered/Resolved]
  - Cough [Recovering/Resolving]
  - Spinal pain [Recovering/Resolving]
  - Blood cholesterol increased [Unknown]

NARRATIVE: CASE EVENT DATE: 20160304
